FAERS Safety Report 4732772-0 (Version None)
Quarter: 2005Q3

REPORT INFORMATION
  Report Type: 
  Country: None (occurrence: None)
  Receive Date: 20050801
  Receipt Date: 20050721
  Transmission Date: 20060218
  Serious: Yes (Hospitalization)
  Sender: FDA-Public Use
  Company Number: S05-USA-03615-01

PATIENT
  Age: 35 Year
  Sex: Male

DRUGS (3)
  1. CAMPRAL [Suspect]
     Indication: ALCOHOLISM
     Dosage: 666 MG TID PO
     Route: 048
     Dates: start: 20050501, end: 20050701
  2. LITHIUM [Suspect]
     Indication: BIPOLAR DISORDER
     Dates: end: 20050601
  3. ALCOHOL (ALCOHOL) [Suspect]

REACTIONS (5)
  - DELIRIUM TREMENS [None]
  - DIALYSIS [None]
  - DRUG INTERACTION [None]
  - DRUG LEVEL ABOVE THERAPEUTIC [None]
  - DRUG TOXICITY [None]
